FAERS Safety Report 13514930 (Version 1)
Quarter: 2017Q2

REPORT INFORMATION
  Report Type: Spontaneous
  Country: DE (occurrence: DE)
  Receive Date: 20170504
  Receipt Date: 20170504
  Transmission Date: 20170830
  Serious: Yes (Hospitalization)
  Sender: FDA-Public Use
  Company Number: DE-ABBVIE-17P-062-1965165-00

PATIENT
  Age: 56 Year
  Sex: Male

DRUGS (6)
  1. CLOZAPINE. [Interacting]
     Active Substance: CLOZAPINE
     Route: 065
     Dates: start: 20150928
  2. DIPIPERON [Interacting]
     Active Substance: PIPAMPERONE
     Indication: PRODUCT USED FOR UNKNOWN INDICATION
     Route: 065
  3. VALPROATE SODIUM. [Suspect]
     Active Substance: VALPROATE SODIUM
     Indication: PRODUCT USED FOR UNKNOWN INDICATION
     Route: 065
  4. HALDOL [Interacting]
     Active Substance: HALOPERIDOL
     Indication: PRODUCT USED FOR UNKNOWN INDICATION
     Route: 065
  5. CLOZAPINE. [Interacting]
     Active Substance: CLOZAPINE
     Indication: PRODUCT USED FOR UNKNOWN INDICATION
     Route: 065
     Dates: end: 20150928
  6. PANTOPRAZOLE ABZ [Concomitant]
     Indication: PRODUCT USED FOR UNKNOWN INDICATION

REACTIONS (3)
  - Pleurothotonus [Recovered/Resolved]
  - Drug interaction [Unknown]
  - Parkinsonism [Recovered/Resolved]

NARRATIVE: CASE EVENT DATE: 20150629
